FAERS Safety Report 22123579 (Version 1)
Quarter: 2023Q1

REPORT INFORMATION
  Report Type: Spontaneous
  Country: KR (occurrence: KR)
  Receive Date: 20230322
  Receipt Date: 20230322
  Transmission Date: 20230418
  Serious: Yes (Other)
  Sender: FDA-Public Use
  Company Number: KR-009507513-2303KOR006792

PATIENT
  Sex: Female

DRUGS (1)
  1. KEYTRUDA [Suspect]
     Active Substance: PEMBROLIZUMAB
     Indication: Cervix carcinoma
     Dosage: UNK
     Dates: start: 2023

REACTIONS (2)
  - Intestinal perforation [Unknown]
  - Intestinal fistula [Unknown]

NARRATIVE: CASE EVENT DATE: 20230101
